FAERS Safety Report 23521434 (Version 1)
Quarter: 2024Q1

REPORT INFORMATION
  Report Type: Spontaneous
  Country: US (occurrence: US)
  Receive Date: 20240214
  Receipt Date: 20240214
  Transmission Date: 20240410
  Serious: No
  Sender: FDA-Public Use
  Company Number: US-862174955-ML2024-00711

PATIENT
  Age: 64 Year
  Sex: Female
  Weight: 63.5 kg

DRUGS (4)
  1. DORZOLAMIDE HYDROCHLORIDE AND TIMOLOL MALEATE OPHTHALMIC SOLUTION [Suspect]
     Active Substance: DORZOLAMIDE HYDROCHLORIDE\TIMOLOL MALEATE
     Indication: Glaucoma
     Dosage: 22.3 MG/6.8 MG PER ML, ONE DROP IN EACH EYE, TWICE A DAY
     Route: 047
     Dates: start: 20240120
  2. LATANOPROST [Concomitant]
     Active Substance: LATANOPROST
     Indication: Product used for unknown indication
  3. LISINOPRIL [Concomitant]
     Active Substance: LISINOPRIL
     Indication: Hypertension
  4. LEVOTHYROXINE [Concomitant]
     Active Substance: LEVOTHYROXINE\LEVOTHYROXINE SODIUM
     Indication: Hypothyroidism

REACTIONS (2)
  - Eye pain [Unknown]
  - Photophobia [Unknown]

NARRATIVE: CASE EVENT DATE: 20240101
